FAERS Safety Report 5525764-5 (Version None)
Quarter: 2007Q4

REPORT INFORMATION
  Report Type: 
  Country: None (occurrence: None)
  Receive Date: 20071126
  Receipt Date: 20071121
  Transmission Date: 20080405
  Serious: Yes (Life-Threatening)
  Sender: FDA-Public Use
  Company Number: AU-ASTRAZENECA-2007AP07423

PATIENT
  Age: 15001 Day
  Sex: Female

DRUGS (5)
  1. SEROQUEL [Suspect]
     Route: 048
     Dates: start: 20070301, end: 20070402
  2. AMOXICILLIN [Suspect]
     Route: 048
     Dates: start: 20070326, end: 20070329
  3. QUILONUM SR [Suspect]
     Route: 048
     Dates: start: 20070201, end: 20070402
  4. LAMICTAL [Suspect]
     Route: 048
     Dates: start: 20070201, end: 20070402
  5. EFFEXOR XR [Suspect]
     Route: 048
     Dates: start: 20061101, end: 20070402

REACTIONS (5)
  - ERYTHEMA MULTIFORME [None]
  - OEDEMA [None]
  - PYREXIA [None]
  - RASH [None]
  - STEVENS-JOHNSON SYNDROME [None]
